FAERS Safety Report 10307015 (Version 1)
Quarter: 2014Q3

REPORT INFORMATION
  Report Type: Report from Study
  Country: DE (occurrence: DE)
  Receive Date: 20140715
  Receipt Date: 20140715
  Transmission Date: 20150326
  Serious: No
  Sender: FDA-Public Use
  Company Number: PHHY2014DE086037

PATIENT
  Sex: Female
  Weight: 60 kg

DRUGS (11)
  1. IBUPROFEN. [Concomitant]
     Active Substance: IBUPROFEN
     Dosage: 600 MG, UNK
     Dates: start: 20130821, end: 20131125
  2. AMN107 [Suspect]
     Active Substance: NILOTINIB
     Dosage: 800 MG, PER DAY
     Dates: start: 20131216
  3. CIPROBAY                           /01429801/ [Concomitant]
     Active Substance: CIPROFLOXACIN
     Dosage: UNK UKN, UNK
     Dates: start: 20130617, end: 20130708
  4. PANTOZOL [Concomitant]
     Active Substance: PANTOPRAZOLE SODIUM
     Dosage: UNK UKN, UNK
     Dates: start: 20130821
  5. CORTISON [Concomitant]
     Active Substance: CORTISONE ACETATE
     Dosage: 10 MG, UNK
     Dates: start: 20130613
  6. NOVALGIN [Concomitant]
     Active Substance: METAMIZOLE SODIUM
     Dosage: UNK UKN, UNK
     Dates: start: 20130826
  7. AMN107 [Suspect]
     Active Substance: NILOTINIB
     Dosage: 300 MG, PER DAY
     Dates: start: 20130821
  8. AMN107 [Suspect]
     Active Substance: NILOTINIB
     Dosage: 800 MG, PER DAY
     Dates: start: 20130923
  9. VERSATIS [Concomitant]
     Active Substance: LIDOCAINE
     Dosage: UNK UKN, UNK
     Dates: start: 20131016
  10. AMN107 [Suspect]
     Active Substance: NILOTINIB
     Dosage: 300 MG, PER DAY
     Route: 048
     Dates: start: 20130715
  11. AMN107 [Suspect]
     Active Substance: NILOTINIB
     Indication: CHRONIC MYELOID LEUKAEMIA
     Dosage: 800 MG, PER DAY
     Route: 048
     Dates: start: 20130614

REACTIONS (3)
  - Dizziness [Recovered/Resolved]
  - Headache [Recovered/Resolved]
  - Neck pain [Not Recovered/Not Resolved]

NARRATIVE: CASE EVENT DATE: 20130916
